FAERS Safety Report 5622883-X (Version None)
Quarter: 2008Q1

REPORT INFORMATION
  Report Type: 
  Country: None (occurrence: None)
  Receive Date: 20080207
  Receipt Date: 20080207
  Transmission Date: 20080703
  Serious: No
  Sender: FDA-Public Use
  Company Number: None

PATIENT
  Age: 53 Year
  Sex: Female

DRUGS (7)
  1. DESFLURANE [Suspect]
     Dates: start: 20060628, end: 20070503
  2. MELLARIL [Concomitant]
  3. NEXIUM [Concomitant]
  4. PRILOSEC [Concomitant]
  5. PROTONIX [Concomitant]
  6. BUSPAR [Concomitant]
  7. FERROUS SULFATE TAB [Concomitant]

REACTIONS (6)
  - CHOLESTASIS [None]
  - HEPATIC FAILURE [None]
  - HEPATIC FIBROSIS [None]
  - HEPATOTOXICITY [None]
  - INTERNATIONAL NORMALISED RATIO INCREASED [None]
  - LIVER INJURY [None]
